FAERS Safety Report 7087119-4 (Version None)
Quarter: 2010Q4

REPORT INFORMATION
  Report Type: 
  Country: None (occurrence: None)
  Receive Date: 20101106
  Receipt Date: 20101021
  Transmission Date: 20110411
  Serious: Yes (Hospitalization)
  Sender: FDA-Public Use
  Company Number: US-WYE-H18355310

PATIENT
  Sex: Female
  Weight: 50.85 kg

DRUGS (1)
  1. PREMARIN [Suspect]
     Indication: HORMONE REPLACEMENT THERAPY
     Dosage: NOT PROVIDED
     Route: 048
     Dates: start: 19860101, end: 19860101

REACTIONS (1)
  - MIGRAINE [None]
